FAERS Safety Report 19489116 (Version 1)
Quarter: 2021Q3

REPORT INFORMATION
  Report Type: Spontaneous
  Country: GB (occurrence: GB)
  Receive Date: 20210703
  Receipt Date: 20210703
  Transmission Date: 20211014
  Serious: Yes (Other)
  Sender: FDA-Public Use
  Company Number: GB-DRREDDYS-LIT/UKI/21/0137241

PATIENT
  Age: 25 Year
  Sex: Male

DRUGS (3)
  1. DEXAMETHASONE. [Concomitant]
     Active Substance: DEXAMETHASONE
     Indication: PRODUCT USED FOR UNKNOWN INDICATION
  2. BORTEZOMIB. [Suspect]
     Active Substance: BORTEZOMIB
     Dosage: FOUR DAYS LATER, HE RECEIVED THE SECOND DOSE OF BORTEZOMIB
  3. BORTEZOMIB. [Suspect]
     Active Substance: BORTEZOMIB
     Indication: WARM TYPE HAEMOLYTIC ANAEMIA
     Dosage: FIRST DOSE OF BORTEZOMIB 1.3 MG/M2 ON DAY 164

REACTIONS (2)
  - Intestinal pseudo-obstruction [Recovered/Resolved]
  - Neuropathy peripheral [Recovered/Resolved]
